FAERS Safety Report 22194359 (Version 1)
Quarter: 2023Q2

REPORT INFORMATION
  Report Type: Spontaneous
  Country: US (occurrence: US)
  Receive Date: 20230411
  Receipt Date: 20230411
  Transmission Date: 20230722
  Serious: Yes (Hospitalization, Other)
  Sender: FDA-Public Use
  Company Number: US-APOTEX-2023AP006459

PATIENT
  Age: 54 Year
  Sex: Female

DRUGS (1)
  1. TRANEXAMIC ACID [Suspect]
     Active Substance: TRANEXAMIC ACID
     Indication: Heavy menstrual bleeding
     Dosage: 1300 MILLIGRAM, TID (AS NEEDED ON BASIS FOR MENORRHAGIA AND HAD TAKEN AT LEAST 6 DOSES OVER THE PRIO
     Route: 048

REACTIONS (1)
  - Acute myocardial infarction [Unknown]
